FAERS Safety Report 9823126 (Version 1)
Quarter: 2014Q1

REPORT INFORMATION
  Report Type: Spontaneous
  Country: US (occurrence: US)
  Receive Date: 20140116
  Receipt Date: 20140116
  Transmission Date: 20141002
  Serious: No
  Sender: FDA-Public Use
  Company Number: US-GILEAD-2011-0036278

PATIENT
  Age: 67 Year
  Sex: Male

DRUGS (4)
  1. LETAIRIS [Suspect]
     Indication: PRODUCT USED FOR UNKNOWN INDICATION
     Route: 048
     Dates: start: 20101201, end: 20110207
  2. VENTAVIS [Concomitant]
  3. REVATIO [Concomitant]
  4. TRACLEER [Concomitant]

REACTIONS (1)
  - Arthralgia [Unknown]
